FAERS Safety Report 6072955-3 (Version None)
Quarter: 2009Q1

REPORT INFORMATION
  Report Type: 
  Country: None (occurrence: None)
  Receive Date: 20090206
  Receipt Date: 20090130
  Transmission Date: 20090719
  Serious: Yes (Disabling, Other)
  Sender: FDA-Public Use
  Company Number: 2009-190506-NL

PATIENT
  Age: 20 Year
  Sex: Female
  Weight: 99.8 kg

DRUGS (7)
  1. NUVARING [Suspect]
     Indication: CONTRACEPTION
     Dosage: 3 WEEKS IN, 1 WEEK OUT
     Dates: start: 20081201, end: 20090111
  2. ZYRTEC [Concomitant]
  3. ZANTAC [Concomitant]
  4. PROBIOTICA [Concomitant]
  5. BENADRYL ^WARNER-LAMBERT^ /USA/ [Concomitant]
  6. ALBUTEROL [Concomitant]
  7. EPINEPHRINE [Concomitant]

REACTIONS (3)
  - ANAPHYLACTIC REACTION [None]
  - THERAPEUTIC RESPONSE DECREASED [None]
  - VISUAL IMPAIRMENT [None]
